FAERS Safety Report 7513820-1 (Version None)
Quarter: 2011Q2

REPORT INFORMATION
  Report Type: 
  Country: None (occurrence: None)
  Receive Date: 20110531
  Receipt Date: 20110518
  Transmission Date: 20111010
  Serious: Yes (Hospitalization, Other)
  Sender: FDA-Public Use
  Company Number: US-UCBSA-028313

PATIENT
  Sex: Female

DRUGS (3)
  1. CIMZIA [Suspect]
     Indication: CROHN'S DISEASE
     Route: 058
     Dates: start: 20110208
  2. PREDNISONE [Concomitant]
     Dosage: 40 MG
  3. PREDNISONE [Concomitant]
     Dosage: 5 MG
     Dates: end: 20110101

REACTIONS (6)
  - INTESTINAL RESECTION [None]
  - ABDOMINAL PAIN UPPER [None]
  - ASTHENIA [None]
  - DRUG INEFFECTIVE [None]
  - FEELING ABNORMAL [None]
  - FATIGUE [None]
